FAERS Safety Report 10913966 (Version 3)
Quarter: 2015Q2

REPORT INFORMATION
  Report Type: Spontaneous
  Country: US (occurrence: US)
  Receive Date: 20150313
  Receipt Date: 20150420
  Transmission Date: 20150821
  Serious: Yes (Hospitalization, Disabling)
  Sender: FDA-Public Use
  Company Number: US-BAXTER-2015BAX012677

PATIENT
  Age: 31 Year
  Sex: Female
  Weight: 64 kg

DRUGS (4)
  1. GAMMAGARD LIQUID [Suspect]
     Active Substance: HUMAN IMMUNOGLOBULIN G
     Indication: RENAL TRANSPLANT
     Route: 065
     Dates: start: 20150224
  2. GAMMAGARD LIQUID [Suspect]
     Active Substance: HUMAN IMMUNOGLOBULIN G
     Indication: OFF LABEL USE
     Route: 042
     Dates: start: 20150227, end: 20150228
  3. GAMMAGARD LIQUID [Suspect]
     Active Substance: HUMAN IMMUNOGLOBULIN G
     Indication: IMMUNE TOLERANCE INDUCTION
  4. ALBUMIN 25% [Concomitant]
     Active Substance: ALBUMIN (HUMAN)
     Indication: BLOOD PRODUCT TRANSFUSION
     Route: 042
     Dates: start: 20150217, end: 20150228

REACTIONS (2)
  - Renal transplant failure [Not Recovered/Not Resolved]
  - Renal vascular thrombosis [Not Recovered/Not Resolved]

NARRATIVE: CASE EVENT DATE: 20150301
